FAERS Safety Report 15371446 (Version 2)
Quarter: 2018Q3

REPORT INFORMATION
  Report Type: Spontaneous
  Country: US (occurrence: US)
  Receive Date: 20180911
  Receipt Date: 20180926
  Transmission Date: 20181010
  Serious: Yes (Hospitalization)
  Sender: FDA-Public Use
  Company Number: US-AKORN PHARMACEUTICALS-2018AKN01364

PATIENT
  Age: 16 Year
  Sex: Male
  Weight: 72.56 kg

DRUGS (4)
  1. CLARAVIS [Suspect]
     Active Substance: ISOTRETINOIN
     Indication: ACNE
     Dosage: 30 MG, 2X/DAY
     Dates: start: 20180601, end: 2018
  2. UNSPECIFIED ANTIDEPRESSION MEDS [Concomitant]
  3. MYORISAN [Suspect]
     Active Substance: ISOTRETINOIN
     Indication: ACNE
     Dosage: 40 MG, 1X/DAY
     Dates: start: 20180424, end: 2018
  4. MYORISAN [Suspect]
     Active Substance: ISOTRETINOIN
     Dosage: 40 MG, 2X/DAY
     Dates: start: 20180626, end: 20180830

REACTIONS (3)
  - Off label use [Recovered/Resolved]
  - Suicidal ideation [Recovered/Resolved]
  - Depression [Not Recovered/Not Resolved]

NARRATIVE: CASE EVENT DATE: 20180424
